FAERS Safety Report 6689996-5 (Version None)
Quarter: 2010Q2

REPORT INFORMATION
  Report Type: 
  Country: None (occurrence: None)
  Receive Date: 20100421
  Receipt Date: 20100408
  Transmission Date: 20101027
  Serious: Yes (Hospitalization)
  Sender: FDA-Public Use
  Company Number: PHHY2010DE24445

PATIENT
  Age: 85 Year
  Sex: Female

DRUGS (12)
  1. DIOVAN [Suspect]
     Indication: HYPERTENSION
     Dosage: 1 DF, QD
     Route: 048
  2. AZATHIOPRINE [Suspect]
     Indication: DERMATOMYOSITIS
     Dosage: 2 DF, QD
     Route: 048
  3. DELIX [Suspect]
     Indication: HYPERTENSION
     Dosage: 2 DF, QD
     Route: 048
     Dates: end: 20091015
  4. TORSEMIDE [Suspect]
     Indication: HYPERTENSION
     Dosage: 1 DF, QD
     Route: 048
     Dates: end: 20091015
  5. PREDNISOLON [Concomitant]
     Indication: DERMATOMYOSITIS
     Dosage: 1 DF, QD
     Route: 048
     Dates: start: 20090901
  6. CALCIMAGON-D3 [Concomitant]
     Indication: OSTEOPOROSIS
     Dosage: 500 MG/400 IE
     Route: 048
  7. FOSAMAX [Concomitant]
     Indication: OSTEOPOROSIS
     Dosage: 1 DF, QW
     Route: 048
  8. PENTAERYTHRITOL TETRANITRATE [Concomitant]
     Indication: ANGINA PECTORIS
     Dosage: 1 DF, QD
     Route: 048
  9. ASPIRIN [Concomitant]
     Indication: CORONARY ARTERY DISEASE
     Dosage: 1 DF, QD
     Route: 048
  10. BISOPROLOL [Concomitant]
     Indication: HYPERTENSION
     Dosage: 2 DF, QD
     Route: 048
  11. LEVOTHYROXINE SODIUM [Concomitant]
     Indication: THYROIDITIS
     Dosage: 75 ?G
     Route: 048
  12. PANTOZOL [Concomitant]
     Indication: PROPHYLAXIS
     Dosage: 1 DF, QD
     Route: 048
     Dates: start: 20090901

REACTIONS (7)
  - BARTTER'S SYNDROME [None]
  - BLOOD ALDOSTERONE INCREASED [None]
  - HEADACHE [None]
  - HYPONATRAEMIA [None]
  - MALAISE [None]
  - SPINAL COMPRESSION FRACTURE [None]
  - URINE SODIUM DECREASED [None]
